FAERS Safety Report 24353663 (Version 1)
Quarter: 2024Q3

REPORT INFORMATION
  Report Type: Spontaneous
  Country: FR (occurrence: FR)
  Receive Date: 20240923
  Receipt Date: 20240923
  Transmission Date: 20241017
  Serious: Yes (Hospitalization)
  Sender: MYLAN
  Company Number: None

PATIENT
  Age: 69 Year
  Sex: Male

DRUGS (8)
  1. DEXMEDETOMIDINE [Suspect]
     Active Substance: DEXMEDETOMIDINE
     Indication: Anaesthesia
     Dosage: UNK
     Route: 042
     Dates: start: 20240411, end: 20240411
  2. MAGNESIUM [Suspect]
     Active Substance: MAGNESIUM
     Indication: Anaesthesia
     Dosage: UNK
     Route: 042
     Dates: start: 20240411
  3. ATRACURIUM [Suspect]
     Active Substance: ATRACURIUM
     Indication: Anaesthesia
     Dosage: UNK
     Route: 042
     Dates: start: 20240411, end: 20240411
  4. KETAMINE [Concomitant]
     Active Substance: KETAMINE
     Indication: Anaesthesia
     Dosage: UNK
     Route: 042
     Dates: start: 20240411, end: 20240411
  5. XYLOCAINE [Concomitant]
     Active Substance: LIDOCAINE HYDROCHLORIDE
     Indication: Anaesthesia
     Dosage: UNK
     Route: 042
     Dates: start: 20240411, end: 20240411
  6. PROPOFOL [Concomitant]
     Active Substance: PROPOFOL
     Indication: Anaesthesia
     Dosage: UNK
     Route: 042
     Dates: start: 20240411
  7. CEFOXITIN [Concomitant]
     Active Substance: CEFOXITIN SODIUM
     Dosage: UNK
     Route: 042
     Dates: start: 20240411, end: 20240411
  8. METRONIDAZOLE [Concomitant]
     Active Substance: METRONIDAZOLE
     Dosage: UNK
     Route: 042
     Dates: start: 20240411, end: 20240411

REACTIONS (2)
  - Cardio-respiratory arrest [Recovered/Resolved]
  - Rash [Recovered/Resolved]

NARRATIVE: CASE EVENT DATE: 20240411
